FAERS Safety Report 7315114-6 (Version None)
Quarter: 2011Q1

REPORT INFORMATION
  Report Type: 
  Country: None (occurrence: None)
  Receive Date: 20110225
  Receipt Date: 20110217
  Transmission Date: 20110831
  Serious: Yes (Other)
  Sender: FDA-Public Use
  Company Number: US-AMGEN-USASP2011009646

PATIENT
  Age: 85 Year
  Sex: Female

DRUGS (2)
  1. METHOTREXATE [Concomitant]
     Dosage: UNK
     Dates: start: 20100201
  2. ENBREL [Suspect]
     Indication: ARTHRITIS
     Dosage: 50 MG, QWK
     Dates: start: 20101116

REACTIONS (12)
  - PRESYNCOPE [None]
  - NASOPHARYNGITIS [None]
  - ARTHRITIS INFECTIVE [None]
  - LOSS OF CONSCIOUSNESS [None]
  - DIZZINESS [None]
  - NAUSEA [None]
  - RETCHING [None]
  - READING DISORDER [None]
  - JOINT EFFUSION [None]
  - COUGH [None]
  - AORTIC ANEURYSM [None]
  - HYPOAESTHESIA [None]
